FAERS Safety Report 9603870 (Version 2)
Quarter: 2013Q4

REPORT INFORMATION
  Report Type: Report from Study
  Country: DE (occurrence: DE)
  Receive Date: 20131008
  Receipt Date: 20131204
  Transmission Date: 20140711
  Serious: Yes (Hospitalization, Other)
  Sender: FDA-Public Use
  Company Number: DE-BIOGENIDEC-2013BI095581

PATIENT
  Age: 52 Year
  Sex: Male

DRUGS (1)
  1. TYSABRI [Suspect]
     Indication: RELAPSING-REMITTING MULTIPLE SCLEROSIS
     Route: 042
     Dates: start: 20071218

REACTIONS (1)
  - Goitre [Recovered/Resolved]
